FAERS Safety Report 4493394-2 (Version None)
Quarter: 2004Q4

REPORT INFORMATION
  Report Type: 
  Country: None (occurrence: None)
  Receive Date: 20041104
  Receipt Date: 20041028
  Transmission Date: 20050328
  Serious: Yes (Hospitalization)
  Sender: FDA-Public Use
  Company Number: US-MERCK-0410USA04310

PATIENT
  Age: 77 Year
  Sex: Male

DRUGS (4)
  1. LOPRESSOR [Concomitant]
     Route: 065
  2. LIPITOR [Concomitant]
     Route: 065
  3. VIOXX [Suspect]
     Indication: ARTHRITIS
     Route: 048
  4. PEPCID AC [Concomitant]
     Route: 065

REACTIONS (2)
  - CARDIAC DISORDER [None]
  - DEFAECATION URGENCY [None]
